FAERS Safety Report 6468454-7 (Version None)
Quarter: 2009Q4

REPORT INFORMATION
  Report Type: 
  Country: None (occurrence: None)
  Receive Date: 20091130
  Receipt Date: 20091115
  Transmission Date: 20100525
  Serious: Yes (Hospitalization)
  Sender: FDA-Public Use
  Company Number: CERZ-1000966

PATIENT
  Age: 64 Year
  Sex: Male
  Weight: 74 kg

DRUGS (4)
  1. CEREZYME [Suspect]
     Indication: GAUCHER'S DISEASE
     Dosage: 30 MG/KG, Q2W, INTRAVENOUS
     Route: 042
     Dates: start: 20060615, end: 20090428
  2. FUROSEMIDE [Concomitant]
  3. ACE INHIBITOR NOS [Concomitant]
  4. METHYLDOPA [Concomitant]

REACTIONS (4)
  - DIALYSIS [None]
  - NEPHROPATHY [None]
  - OEDEMA PERIPHERAL [None]
  - RENAL FAILURE CHRONIC [None]
